FAERS Safety Report 9287737 (Version 1)
Quarter: 2012Q4

REPORT INFORMATION
  Report Type: Spontaneous
  Country: MX (occurrence: None)
  Receive Date: 20120914
  Receipt Date: 20120914
  Transmission Date: 20130627
  Serious: Yes (Death)
  Sender: FDA-Public Use
  Company Number: ENTC2012-0055

PATIENT
  Age: 94 Year
  Sex: Female

DRUGS (1)
  1. STALEVO (LEVODOPA, CARBIDOPA, ENTACAPONE) [Suspect]
     Indication: PARKINSON^S DISEASE
     Dosage: 150/37.5/200 mg three tablets daily  Oral
     Dates: start: 20070929

REACTIONS (1)
  - Myocardial infarction [None]
